FAERS Safety Report 6426253-6 (Version None)
Quarter: 2009Q4

REPORT INFORMATION
  Report Type: 
  Country: None (occurrence: None)
  Receive Date: 20091104
  Receipt Date: 20091023
  Transmission Date: 20100525
  Serious: Yes (Hospitalization)
  Sender: FDA-Public Use
  Company Number: CA-ROCHE-657295

PATIENT
  Sex: Female

DRUGS (1)
  1. CELLCEPT [Suspect]
     Dosage: STRENGTH: HIGH
     Route: 065
     Dates: start: 20030101

REACTIONS (5)
  - ABASIA [None]
  - FATIGUE [None]
  - MULTIPLE SCLEROSIS [None]
  - NERVE INJURY [None]
  - OFF LABEL USE [None]
